FAERS Safety Report 10060125 (Version 1)
Quarter: 2014Q2

REPORT INFORMATION
  Report Type: Spontaneous
  Country: ES (occurrence: ES)
  Receive Date: 20140404
  Receipt Date: 20140404
  Transmission Date: 20141212
  Serious: Yes (Other)
  Sender: FDA-Public Use
  Company Number: PHHY2014ES039315

PATIENT
  Age: 32 Year
  Sex: Female

DRUGS (1)
  1. DROSPIRENONE+ETHINYLESTRADIOL [Suspect]
     Indication: CONTRACEPTION
     Route: 048

REACTIONS (5)
  - Hepatotoxicity [Recovered/Resolved]
  - Hepatic steatosis [Unknown]
  - Transaminases increased [Recovered/Resolved]
  - Gamma-glutamyltransferase increased [Recovered/Resolved]
  - Asthenia [Recovered/Resolved]
